FAERS Safety Report 11800858 (Version 1)
Quarter: 2015Q4

REPORT INFORMATION
  Report Type: Report from Study
  Country: NL (occurrence: NL)
  Receive Date: 20151204
  Receipt Date: 20151204
  Transmission Date: 20160305
  Serious: Yes (Other)
  Sender: FDA-Public Use
  Company Number: NL-AMGEN-NLDSL2015128354

PATIENT
  Age: 47 Year
  Sex: Female

DRUGS (1)
  1. ARANESP [Suspect]
     Active Substance: DARBEPOETIN ALFA
     Indication: PRODUCT USED FOR UNKNOWN INDICATION
     Dosage: 40 MUG (100 MCG/ML IN 0.4ML), Q4WK
     Route: 065

REACTIONS (2)
  - Renal failure [Recovered/Resolved]
  - Renal transplant [Unknown]

NARRATIVE: CASE EVENT DATE: 20140613
